FAERS Safety Report 14192829 (Version 2)
Quarter: 2023Q2

REPORT INFORMATION
  Report Type: Spontaneous
  Country: JP (occurrence: JP)
  Receive Date: 20171115
  Receipt Date: 20230421
  Transmission Date: 20230722
  Serious: Yes (Other)
  Sender: FDA-Public Use
  Company Number: JP-SHIRE-JP201728958

PATIENT
  Age: 7 Year
  Sex: Male

DRUGS (4)
  1. INTUNIV [Suspect]
     Active Substance: GUANFACINE HYDROCHLORIDE
     Indication: Attention deficit hyperactivity disorder
     Dosage: 0.5 MILLIGRAM, QD
     Route: 048
     Dates: start: 20170731
  2. INTUNIV [Suspect]
     Active Substance: GUANFACINE HYDROCHLORIDE
     Dosage: 0.25 MILLIGRAM, QD
     Route: 048
     Dates: start: 20170814
  3. INTUNIV [Suspect]
     Active Substance: GUANFACINE HYDROCHLORIDE
     Dosage: 0.5 MILLIGRAM, QD
     Route: 048
     Dates: start: 20170824
  4. ROZEREM [Concomitant]
     Active Substance: RAMELTEON
     Indication: Insomnia
     Dosage: 0.8 MILLIGRAM, QD
     Route: 048
     Dates: start: 20170731

REACTIONS (3)
  - Stupor [Unknown]
  - Somnolence [Unknown]
  - Medication error [Unknown]

NARRATIVE: CASE EVENT DATE: 20170801
